FAERS Safety Report 16402859 (Version 3)
Quarter: 2021Q1

REPORT INFORMATION
  Report Type: Report from Study
  Country: US (occurrence: US)
  Receive Date: 20190607
  Receipt Date: 20210203
  Transmission Date: 20210419
  Serious: Yes (Other)
  Sender: FDA-Public Use
  Company Number: PHEH2019US023638

PATIENT
  Age: 4 Year
  Sex: Female
  Weight: 23.81 kg

DRUGS (3)
  1. ILARIS [Suspect]
     Active Substance: CANAKINUMAB
     Indication: PYREXIA
     Dosage: 75 MG, EVERY 8 WEEKS
     Route: 058
     Dates: start: 20180601
  2. ILARIS [Suspect]
     Active Substance: CANAKINUMAB
     Dosage: 0.5 ML, EVERY 28 DAYS
     Route: 058
  3. ILARIS [Suspect]
     Active Substance: CANAKINUMAB
     Indication: CRYOPYRIN ASSOCIATED PERIODIC SYNDROME
     Dosage: 75 MG, QMO
     Route: 058
     Dates: start: 20180401

REACTIONS (15)
  - Asthenopia [Not Recovered/Not Resolved]
  - Cryopyrin associated periodic syndrome [Unknown]
  - Therapeutic response shortened [Not Recovered/Not Resolved]
  - Abdominal pain [Not Recovered/Not Resolved]
  - Rash [Not Recovered/Not Resolved]
  - Arthralgia [Not Recovered/Not Resolved]
  - Headache [Not Recovered/Not Resolved]
  - Cold urticaria [Not Recovered/Not Resolved]
  - Pyrexia [Not Recovered/Not Resolved]
  - Eye inflammation [Not Recovered/Not Resolved]
  - Illness [Unknown]
  - Condition aggravated [Unknown]
  - Sleep terror [Not Recovered/Not Resolved]
  - Oral pain [Not Recovered/Not Resolved]
  - Product dose omission issue [Unknown]

NARRATIVE: CASE EVENT DATE: 20180601
